FAERS Safety Report 9600691 (Version 1)
Quarter: 2013Q4

REPORT INFORMATION
  Report Type: Spontaneous
  Country: US (occurrence: US)
  Receive Date: 20131004
  Receipt Date: 20131004
  Transmission Date: 20140711
  Serious: Yes (Other)
  Sender: FDA-Public Use
  Company Number: US-AMGEN-USASP2013036890

PATIENT
  Age: 46 Year
  Sex: Female

DRUGS (1)
  1. ENBREL [Suspect]
     Indication: RHEUMATOID ARTHRITIS
     Dosage: 50 MG, QWK
     Dates: start: 20030101

REACTIONS (4)
  - Atypical pneumonia [Recovered/Resolved]
  - Malaise [Not Recovered/Not Resolved]
  - Rheumatoid arthritis [Recovered/Resolved]
  - Bronchitis [Recovered/Resolved]
